FAERS Safety Report 13674730 (Version 3)
Quarter: 2017Q3

REPORT INFORMATION
  Report Type: Spontaneous
  Country: US (occurrence: US)
  Receive Date: 20170621
  Receipt Date: 20170706
  Transmission Date: 20171127
  Serious: No
  Sender: FDA-Public Use
  Company Number: US-PFIZER INC-2017267525

PATIENT
  Age: 45 Year
  Sex: Male
  Weight: 83.91 kg

DRUGS (4)
  1. PREDNISONE. [Concomitant]
     Active Substance: PREDNISONE
     Indication: MYASTHENIA GRAVIS
     Dosage: 30MG, TABLET, EVERY DAY
     Dates: start: 1999
  2. LYRICA [Suspect]
     Active Substance: PREGABALIN
     Indication: DIABETIC NEUROPATHY
     Dosage: 75MG, CAPSULE, TWICE A DAY
  3. LEVEMIR [Concomitant]
     Active Substance: INSULIN DETEMIR
     Indication: DIABETES MELLITUS
     Dosage: 45 UNITS A DAY, SHOT
     Dates: start: 1999
  4. NOVOLOG [Concomitant]
     Active Substance: INSULIN ASPART
     Indication: DIABETES MELLITUS
     Dosage: SHOT
     Dates: start: 1999

REACTIONS (3)
  - Insomnia [Unknown]
  - Product use issue [Unknown]
  - Loss of personal independence in daily activities [Unknown]
